FAERS Safety Report 13432045 (Version 2)
Quarter: 2017Q3

REPORT INFORMATION
  Report Type: Spontaneous
  Country: US (occurrence: US)
  Receive Date: 20170412
  Receipt Date: 20170707
  Transmission Date: 20171127
  Serious: Yes (Hospitalization)
  Sender: FDA-Public Use
  Company Number: US-JNJFOC-20170314124

PATIENT
  Age: 39 Year
  Sex: Female

DRUGS (4)
  1. XARELTO [Suspect]
     Active Substance: RIVAROXABAN
     Indication: ABNORMAL CLOTTING FACTOR
     Route: 048
     Dates: end: 201507
  2. XARELTO [Suspect]
     Active Substance: RIVAROXABAN
     Indication: ABNORMAL CLOTTING FACTOR
     Route: 048
     Dates: start: 201405, end: 20150308
  3. PLAVIX [Suspect]
     Active Substance: CLOPIDOGREL BISULFATE
     Indication: ABNORMAL CLOTTING FACTOR
     Route: 065
     Dates: end: 20150303
  4. XARELTO [Suspect]
     Active Substance: RIVAROXABAN
     Indication: ABNORMAL CLOTTING FACTOR
     Route: 048
     Dates: start: 20130628

REACTIONS (4)
  - Post procedural haemorrhage [Unknown]
  - Product use in unapproved indication [Unknown]
  - Incision site haemorrhage [Unknown]
  - Off label use [Unknown]

NARRATIVE: CASE EVENT DATE: 20130628
